FAERS Safety Report 4678635-0 (Version None)
Quarter: 2005Q2

REPORT INFORMATION
  Report Type: 
  Country: None (occurrence: None)
  Receive Date: 20050531
  Receipt Date: 20050531
  Transmission Date: 20051028
  Serious: Yes (Hospitalization, Disabling)
  Sender: FDA-Public Use
  Company Number: None

PATIENT
  Age: 75 Year
  Sex: Male
  Weight: 77.1115 kg

DRUGS (2)
  1. VIAGRA [Suspect]
     Indication: ERECTILE DYSFUNCTION
     Dosage: 50 MG 3 PER MONTH ORAL
     Route: 048
     Dates: start: 20010910, end: 20050308
  2. VERAPAMIL [Concomitant]

REACTIONS (1)
  - BLINDNESS UNILATERAL [None]
